FAERS Safety Report 18656495 (Version 2)
Quarter: 2022Q2

REPORT INFORMATION
  Report Type: Spontaneous
  Country: BE (occurrence: BE)
  Receive Date: 20201223
  Receipt Date: 20220628
  Transmission Date: 20220721
  Serious: Yes (Other)
  Sender: FDA-Public Use
  Company Number: BE-GSKCCFEMEA-CASE-01109003_AE-38322

PATIENT

DRUGS (2)
  1. FLUTICASONE FUROATE\VILANTEROL TRIFENATATE [Suspect]
     Active Substance: FLUTICASONE FUROATE\VILANTEROL TRIFENATATE
     Indication: Product used for unknown indication
  2. VENTOLIN [Suspect]
     Active Substance: ALBUTEROL SULFATE
     Indication: Dyspnoea
     Dosage: UNK

REACTIONS (11)
  - Asthmatic crisis [Unknown]
  - Productive cough [Unknown]
  - Dyspnoea [Unknown]
  - Vision blurred [Unknown]
  - Blood potassium decreased [Unknown]
  - Pollakiuria [Unknown]
  - Thirst [Unknown]
  - Hyperglycaemia [Unknown]
  - Candida infection [Unknown]
  - Cough [Unknown]
  - Secretion discharge [Unknown]
